FAERS Safety Report 9858454 (Version 1)
Quarter: 2014Q1

REPORT INFORMATION
  Report Type: Spontaneous
  Country: US (occurrence: None)
  Receive Date: 20140129
  Receipt Date: 20140129
  Transmission Date: 20141002
  Serious: Yes (Disabling)
  Sender: FDA-Public Use
  Company Number: None

PATIENT
  Age: 28 Year
  Sex: Male
  Weight: 88.45 kg

DRUGS (1)
  1. FINASTERIDE [Suspect]
     Indication: ANDROGENETIC ALOPECIA
     Dosage: 1/4TH PILL, TAKEN BY MOUTH
     Dates: start: 20131117, end: 20131219

REACTIONS (4)
  - Libido decreased [None]
  - Testicular pain [None]
  - Major depression [None]
  - Erectile dysfunction [None]
